FAERS Safety Report 7368507 (Version 5)
Quarter: 2015Q4

REPORT INFORMATION
  Report Type: Spontaneous
  Country: US (occurrence: US)
  Receive Date: 20100428
  Receipt Date: 20151124
  Transmission Date: 20160305
  Serious: Yes (Hospitalization, Other)
  Sender: FDA-Public Use
  Company Number: US-BAYER-201020207NA

PATIENT
  Age: 46 Year
  Sex: Female
  Weight: 77.1 kg

DRUGS (7)
  1. LOVENOX [Concomitant]
     Active Substance: ENOXAPARIN SODIUM
     Indication: THROMBOTIC STROKE
     Dosage: UNK
     Route: 058
     Dates: start: 20080415
  2. IBUPROFEN. [Concomitant]
     Active Substance: IBUPROFEN
     Indication: TEMPOROMANDIBULAR JOINT SYNDROME
     Dates: end: 20080415
  3. VALTREX [Concomitant]
     Active Substance: VALACYCLOVIR HYDROCHLORIDE
     Route: 048
     Dates: start: 20071231, end: 20080109
  4. YAZ [Suspect]
     Active Substance: DROSPIRENONE\ETHINYL ESTRADIOL
     Dates: start: 20070506, end: 20080415
  5. ALEVE [Concomitant]
     Active Substance: NAPROXEN SODIUM
     Indication: HEADACHE
  6. VYTORIN [Concomitant]
     Active Substance: EZETIMIBE\SIMVASTATIN
     Dates: start: 20080414
  7. ADVIL [Concomitant]
     Active Substance: IBUPROFEN
     Indication: HEADACHE

REACTIONS (13)
  - Embolic stroke [Recovering/Resolving]
  - Transient ischaemic attack [Recovered/Resolved]
  - Dysarthria [Recovered/Resolved]
  - Dizziness [Recovering/Resolving]
  - Speech disorder [Recovered/Resolved]
  - Muscular weakness [Recovered/Resolved]
  - Hypertension [Unknown]
  - Cerebrovascular accident [Recovering/Resolving]
  - Hypoaesthesia [Recovered/Resolved]
  - Syncope [Recovering/Resolving]
  - Headache [Recovered/Resolved]
  - Embolism arterial [None]
  - Hyperlipidaemia [Unknown]

NARRATIVE: CASE EVENT DATE: 20080414
